FAERS Safety Report 18658349 (Version 1)
Quarter: 2020Q4

REPORT INFORMATION
  Report Type: Report from Study
  Country: CO (occurrence: CO)
  Receive Date: 20201223
  Receipt Date: 20201223
  Transmission Date: 20210114
  Serious: Yes (Life-Threatening, Other)
  Sender: FDA-Public Use
  Company Number: PHHY2019CO111285

PATIENT
  Sex: Female

DRUGS (2)
  1. VOTRIENT [Suspect]
     Active Substance: PAZOPANIB HYDROCHLORIDE
     Dosage: UNK
     Route: 048
  2. VOTRIENT [Suspect]
     Active Substance: PAZOPANIB HYDROCHLORIDE
     Indication: METASTATIC RENAL CELL CARCINOMA
     Dosage: 800 MG, QD
     Route: 048
     Dates: start: 20181212

REACTIONS (13)
  - Malaise [Unknown]
  - Skin exfoliation [Unknown]
  - Chest pain [Unknown]
  - Decreased immune responsiveness [Unknown]
  - Cyst [Unknown]
  - Feeling abnormal [Unknown]
  - Diarrhoea [Unknown]
  - Back pain [Unknown]
  - Stomatitis [Unknown]
  - Influenza [Unknown]
  - Blindness [Unknown]
  - Feeding disorder [Unknown]
  - Fall [Unknown]
